FAERS Safety Report 17601618 (Version 1)
Quarter: 2020Q1

REPORT INFORMATION
  Report Type: Spontaneous
  Country: AU (occurrence: AU)
  Receive Date: 20200330
  Receipt Date: 20200330
  Transmission Date: 20200409
  Serious: Yes (Other)
  Sender: FDA-Public Use
  Company Number: AU-GILEAD-2020-0457126

PATIENT
  Age: 56 Year
  Sex: Male

DRUGS (6)
  1. VITAMIN D [VITAMIN D NOS] [Concomitant]
     Active Substance: VITAMIN D NOS
  2. SEVIKAR [Concomitant]
     Active Substance: AMLODIPINE BESYLATE\OLMESARTAN MEDOXOMIL
  3. STATIN EZ [Concomitant]
     Active Substance: ATORVASTATIN CALCIUM\EZETIMIBE
  4. AMIODARONE [Concomitant]
     Active Substance: AMIODARONE
  5. KEPPRA [Concomitant]
     Active Substance: LEVETIRACETAM
  6. GENVOYA [Suspect]
     Active Substance: COBICISTAT\ELVITEGRAVIR\EMTRICITABINE\TENOFOVIR ALAFENAMIDE FUMARATE
     Indication: HIV INFECTION
     Dosage: 1 DOSAGE FORM, QD
     Route: 048

REACTIONS (2)
  - Type 2 diabetes mellitus [Recovered/Resolved]
  - Diarrhoea [Not Recovered/Not Resolved]
